FAERS Safety Report 6031293-5 (Version None)
Quarter: 2008Q4

REPORT INFORMATION
  Report Type: 
  Country: None (occurrence: None)
  Receive Date: 20081224
  Receipt Date: 20081119
  Transmission Date: 20090506
  Serious: No
  Sender: FDA-Public Use
  Company Number: 2008PV037170

PATIENT
  Age: 58 Year
  Sex: Female

DRUGS (5)
  1. SYMLINPEN 120 (PRAMLINTIDE ACETATE) PEN-INJECTOR (1.0 MG/ML) [Suspect]
     Indication: TYPE 2 DIABETES MELLITUS
     Dosage: 120 MCG;TID;SC
     Route: 058
     Dates: start: 20080101
  2. SYMLIN [Suspect]
     Indication: TYPE 2 DIABETES MELLITUS
     Dosage: 60 MG;TID;SC ; 90 MCG;TID;SC
     Route: 058
     Dates: start: 20060101, end: 20070101
  3. SYMLIN [Suspect]
     Indication: TYPE 2 DIABETES MELLITUS
     Dosage: 60 MG;TID;SC ; 90 MCG;TID;SC
     Route: 058
     Dates: start: 20070101, end: 20080101
  4. HUMALOG [Concomitant]
  5. JANUVIA [Concomitant]

REACTIONS (1)
  - BLOOD GLUCOSE INCREASED [None]
